FAERS Safety Report 9768133 (Version 2)
Quarter: 2014Q1

REPORT INFORMATION
  Report Type: Spontaneous
  Country: US (occurrence: US)
  Receive Date: 20131217
  Receipt Date: 20140305
  Transmission Date: 20141002
  Serious: Yes (Hospitalization)
  Sender: FDA-Public Use
  Company Number: US-GLAXOSMITHKLINE-A1053053A

PATIENT
  Sex: Female

DRUGS (6)
  1. ADVAIR [Suspect]
     Indication: CHRONIC OBSTRUCTIVE PULMONARY DISEASE
     Dosage: 1PUFF TWICE PER DAY
     Route: 055
     Dates: start: 2010
  2. SPIRIVA [Concomitant]
  3. ALBUTEROL [Concomitant]
  4. PRO-AIR [Concomitant]
  5. STEROIDS [Concomitant]
  6. ANTIBIOTICS [Concomitant]

REACTIONS (4)
  - Chronic obstructive pulmonary disease [Unknown]
  - Dyspnoea [Unknown]
  - Blood carbon monoxide increased [Unknown]
  - Drug ineffective [Unknown]
